FAERS Safety Report 25576360 (Version 2)
Quarter: 2025Q3

REPORT INFORMATION
  Report Type: Report from Study
  Country: US (occurrence: US)
  Receive Date: 20250718
  Receipt Date: 20250805
  Transmission Date: 20251020
  Serious: No
  Sender: AVERITAS
  Company Number: US-GRUNENTHAL-2025-110728

PATIENT
  Age: 65 Year
  Sex: Male

DRUGS (5)
  1. QUTENZA [Suspect]
     Active Substance: CAPSAICIN
     Indication: Diabetic neuropathy
     Route: 061
     Dates: start: 20250618, end: 20250618
  2. LYRICA [Concomitant]
     Active Substance: PREGABALIN
     Indication: Product used for unknown indication
     Dosage: 50 MILLIGRAM, 2/DAY
     Route: 065
  3. GABAPENTIN [Concomitant]
     Active Substance: GABAPENTIN
     Indication: Product used for unknown indication
     Dosage: UNK UNK, 3/DAY
     Route: 065
  4. GABAPENTIN [Concomitant]
     Active Substance: GABAPENTIN
     Dosage: UNK, 5/DAY
     Route: 065
  5. UNSPECIFIED INGREDIENT [Concomitant]
     Active Substance: UNSPECIFIED INGREDIENT
     Indication: Pain
     Route: 065

REACTIONS (3)
  - Wrong technique in product usage process [Unknown]
  - Pain [Unknown]
  - Burning sensation [Recovered/Resolved]

NARRATIVE: CASE EVENT DATE: 20250618
